FAERS Safety Report 16786645 (Version 1)
Quarter: 2019Q3

REPORT INFORMATION
  Report Type: Spontaneous
  Country: US (occurrence: US)
  Receive Date: 20190909
  Receipt Date: 20190909
  Transmission Date: 20191005
  Serious: No
  Sender: FDA-Public Use
  Company Number: US-OSMOTICA_PHARMACEUTICAL_US_LLC-POI0573201900278

PATIENT
  Age: 65 Year
  Sex: Male

DRUGS (5)
  1. TRAZODONE [Concomitant]
     Active Substance: TRAZODONE HYDROCHLORIDE
     Indication: SLEEP DISORDER
  2. OSMOLEX ER [Suspect]
     Active Substance: AMANTADINE
     Dates: start: 201906, end: 201906
  3. OSMOLEX ER [Suspect]
     Active Substance: AMANTADINE
     Dosage: ONE 129 MG TABLET AND ONE 193 MG TABLET
     Dates: start: 201906, end: 20190707
  4. OSMOLEX ER [Suspect]
     Active Substance: AMANTADINE
     Dates: start: 20190708
  5. OSMOLEX ER [Suspect]
     Active Substance: AMANTADINE
     Indication: PARKINSON^S DISEASE
     Dates: start: 201905, end: 201906

REACTIONS (5)
  - Aphasia [Recovering/Resolving]
  - Drug ineffective [Recovering/Resolving]
  - Tremor [Recovering/Resolving]
  - Fatigue [Recovered/Resolved with Sequelae]
  - Headache [Recovering/Resolving]

NARRATIVE: CASE EVENT DATE: 201905
